FAERS Safety Report 16470994 (Version 1)
Quarter: 2019Q2

REPORT INFORMATION
  Report Type: Report from Study
  Country: CH (occurrence: CH)
  Receive Date: 20190624
  Receipt Date: 20190624
  Transmission Date: 20190711
  Serious: Yes (Hospitalization, Other)
  Sender: FDA-Public Use
  Company Number: CH-BEH-2017083225

PATIENT
  Sex: Female
  Weight: 80 kg

DRUGS (20)
  1. HIZENTRA [Suspect]
     Active Substance: HUMAN IMMUNOGLOBULIN G
     Dosage: 12 G, QW
     Route: 058
     Dates: start: 20170522
  2. CYMBALTA [Concomitant]
     Active Substance: DULOXETINE HYDROCHLORIDE
     Route: 065
  3. HIZENTRA [Suspect]
     Active Substance: HUMAN IMMUNOGLOBULIN G
     Dosage: 55 ML, QW
     Route: 058
     Dates: start: 20170522
  4. HIZENTRA [Suspect]
     Active Substance: HUMAN IMMUNOGLOBULIN G
     Dosage: 12 G, QW
     Route: 058
     Dates: start: 20170522
  5. HIZENTRA [Suspect]
     Active Substance: HUMAN IMMUNOGLOBULIN G
     Dosage: UNK, 50 ML VIAL
     Route: 058
  6. CELEBREX [Concomitant]
     Active Substance: CELECOXIB
     Indication: PROPHYLAXIS
  7. FENTANYL                           /00174602/ [Concomitant]
     Active Substance: FENTANYL
     Route: 065
  8. DEXAMETHASON                       /00016001/ [Concomitant]
     Active Substance: DEXAMETHASONE
     Route: 065
  9. HIZENTRA [Suspect]
     Active Substance: HUMAN IMMUNOGLOBULIN G
     Dosage: 14 GRAM, QW
     Route: 058
  10. ARCOXIA [Concomitant]
     Active Substance: ETORICOXIB
     Dosage: 60 MG, UNK
     Route: 065
  11. BIOTIN [Concomitant]
     Active Substance: BIOTIN
     Route: 065
  12. HIZENTRA [Suspect]
     Active Substance: HUMAN IMMUNOGLOBULIN G
     Indication: IMMUNODEFICIENCY COMMON VARIABLE
     Dosage: 12 G, QW
     Route: 058
  13. GABAPENTIN. [Concomitant]
     Active Substance: GABAPENTIN
     Route: 065
  14. HIZENTRA [Suspect]
     Active Substance: HUMAN IMMUNOGLOBULIN G
     Dosage: 12 G, QW
     Route: 058
     Dates: start: 20180607
  15. COLCHICINE. [Concomitant]
     Active Substance: COLCHICINE
     Dosage: 1 G, UNK
     Route: 065
  16. TARGIN [Concomitant]
     Active Substance: NALOXONE HYDROCHLORIDE\OXYCODONE HYDROCHLORIDE
     Dosage: 10 MG, BID
     Route: 065
  17. HIZENTRA [Suspect]
     Active Substance: HUMAN IMMUNOGLOBULIN G
     Dosage: UNK, 10 ML VIAL
     Route: 058
  18. CELEBREX [Concomitant]
     Active Substance: CELECOXIB
     Indication: HEADACHE
     Route: 065
  19. DAFALGAN [Concomitant]
     Active Substance: ACETAMINOPHEN
     Dosage: 1 G, UNK
     Route: 065
  20. PANTOPRAZOLE [Concomitant]
     Active Substance: PANTOPRAZOLE
     Dosage: 40 MG, UNK
     Route: 065

REACTIONS (16)
  - Pyrexia [Not Recovered/Not Resolved]
  - Administration site erythema [Recovering/Resolving]
  - Bronchostenosis [Not Recovered/Not Resolved]
  - Dizziness [Recovered/Resolved]
  - Body temperature increased [Recovered/Resolved]
  - Administration site swelling [Recovering/Resolving]
  - Hypoaesthesia [Recovered/Resolved]
  - Blood immunoglobulin G decreased [Not Recovered/Not Resolved]
  - Bronchitis viral [Not Recovered/Not Resolved]
  - Administration site induration [Recovering/Resolving]
  - Respiratory tract infection [Not Recovered/Not Resolved]
  - Bronchitis bacterial [Not Recovered/Not Resolved]
  - Sinusitis [Not Recovered/Not Resolved]
  - Headache [Not Recovered/Not Resolved]
  - Muscular weakness [Recovered/Resolved]
  - Pyrexia [Recovered/Resolved]
